FAERS Safety Report 9375390 (Version 1)
Quarter: 2013Q2

REPORT INFORMATION
  Report Type: Report from Study
  Country: FR (occurrence: FR)
  Receive Date: 20130628
  Receipt Date: 20130628
  Transmission Date: 20140414
  Serious: Yes (Death, Other)
  Sender: FDA-Public Use
  Company Number: FR-ABBOTT-10P-056-0647682-01

PATIENT
  Age: 25 Year
  Sex: Female
  Weight: 56 kg

DRUGS (11)
  1. HUMIRA [Suspect]
     Indication: CROHN^S DISEASE
     Dosage: 160 MG (BASELINE)
     Route: 058
     Dates: start: 20080619, end: 20080619
  2. HUMIRA [Suspect]
     Dosage: 80 MG (WEEK 2)
     Route: 058
  3. HUMIRA [Suspect]
     Route: 058
     Dates: end: 20100420
  4. HUMIRA [Suspect]
     Route: 058
     Dates: start: 20100420, end: 20100420
  5. ARIXTRA [Concomitant]
     Indication: THROMBOCYTOSIS
     Dates: start: 20071127
  6. DELURSAN [Concomitant]
     Indication: CELL DEATH
     Dates: start: 20090209
  7. IMUREL [Concomitant]
     Indication: CROHN^S DISEASE
     Dates: start: 20090520
  8. SOLUPRED [Concomitant]
     Indication: HEPATITIS
     Dates: start: 20090520, end: 20090526
  9. SOLUPRED [Concomitant]
     Dates: start: 20090527, end: 20090602
  10. SOLUPRED [Concomitant]
     Dates: start: 20090603
  11. AZATHIOPRINE [Concomitant]
     Indication: CROHN^S DISEASE

REACTIONS (2)
  - Colon cancer metastatic [Fatal]
  - Lymphadenopathy [Fatal]
